FAERS Safety Report 6875270-0 (Version None)
Quarter: 2010Q3

REPORT INFORMATION
  Report Type: 
  Country: None (occurrence: None)
  Receive Date: 20100727
  Receipt Date: 20100715
  Transmission Date: 20110219
  Serious: Yes (Other)
  Sender: FDA-Public Use
  Company Number: US-JNJFOC-20100603724

PATIENT
  Sex: Female
  Weight: 63.05 kg

DRUGS (7)
  1. REMICADE [Suspect]
     Indication: CROHN'S DISEASE
     Route: 042
  2. AZATHIOPRINE [Concomitant]
     Indication: CROHN'S DISEASE
  3. PHENERGAN [Concomitant]
  4. VITAMIN B-12 [Concomitant]
  5. IRON [Concomitant]
     Route: 042
  6. ALIGN PROBIOTIC [Concomitant]
  7. PROCHLORPERAZINE [Concomitant]

REACTIONS (1)
  - CHRONIC PULMONARY HISTOPLASMOSIS [None]
